FAERS Safety Report 8813410 (Version 1)
Quarter: 2012Q4

REPORT INFORMATION
  Report Type: 
  Country: US (occurrence: US)
  Receive Date: 20120927
  Receipt Date: 20120927
  Transmission Date: 20130627
  Serious: No
  Sender: FDA-Public Use
  Company Number: US-AMGEN-USASP2012051629

PATIENT
  Sex: Female

DRUGS (2)
  1. PROLIA [Suspect]
     Indication: OSTEOPOROSIS
     Dosage: UNK
     Dates: start: 201205
  2. CORTICOSTEROIDS [Concomitant]
     Indication: RESPIRATORY DISORDER
     Dosage: UNK

REACTIONS (1)
  - Rash generalised [Recovering/Resolving]
